FAERS Safety Report 6746656-X (Version None)
Quarter: 2010Q2

REPORT INFORMATION
  Report Type: 
  Country: None (occurrence: None)
  Receive Date: 20100528
  Receipt Date: 20100127
  Transmission Date: 20101027
  Serious: No
  Sender: FDA-Public Use
  Company Number: US-ASTRAZENECA-2010SE04337

PATIENT
  Sex: Female

DRUGS (3)
  1. PRILOSEC OTC [Suspect]
     Route: 048
     Dates: start: 20100127, end: 20100127
  2. ANTIHYPERTENSIVES [Concomitant]
     Dosage: UNKNOWN
  3. LORAZEPAM [Concomitant]
     Dosage: 5 MG, UNK FREQ
     Route: 048

REACTIONS (1)
  - FREQUENT BOWEL MOVEMENTS [None]
